FAERS Safety Report 24661541 (Version 1)
Quarter: 2024Q4

REPORT INFORMATION
  Report Type: Spontaneous
  Country: US (occurrence: US)
  Receive Date: 20241125
  Receipt Date: 20241125
  Transmission Date: 20250115
  Serious: No
  Sender: NOVARTIS
  Company Number: US-002147023-NVSC2024US225663

PATIENT
  Sex: Female
  Weight: 97.98 kg

DRUGS (1)
  1. SCEMBLIX [Suspect]
     Active Substance: ASCIMINIB HYDROCHLORIDE
     Indication: Philadelphia positive chronic myeloid leukaemia
     Dosage: 40 MG, QD
     Route: 048
     Dates: start: 20241029

REACTIONS (2)
  - Hepatic enzyme increased [Recovering/Resolving]
  - Pancreatic disorder [Recovering/Resolving]
